FAERS Safety Report 7647600-3 (Version None)
Quarter: 2011Q3

REPORT INFORMATION
  Report Type: 
  Country: None (occurrence: None)
  Receive Date: 20110726
  Receipt Date: 20110714
  Transmission Date: 20111222
  Serious: Yes (Hospitalization)
  Sender: FDA-Public Use
  Company Number: 2008001422

PATIENT
  Age: 50 Year
  Sex: Female

DRUGS (6)
  1. DICLOFENAC SODIUM [Concomitant]
  2. FENTANYL [Concomitant]
  3. METHYLPREDNISOLONE [Concomitant]
  4. CITALOPRAM HYDROBROMIDE [Concomitant]
  5. ERLOTINIB HYDROCHLORIDE [Suspect]
     Indication: HEAD AND NECK CANCER
     Dosage: 150 MG, UID/QD, ORAL
     Route: 048
     Dates: start: 20080428, end: 20080525
  6. CISPLATIN [Suspect]
     Indication: HEAD AND NECK CANCER
     Dosage: 30 MG/M2, WEEKLY, IV NOS
     Route: 042
     Dates: start: 20080428, end: 20080519

REACTIONS (5)
  - VOMITING [None]
  - DERMATITIS [None]
  - MUCOSAL INFLAMMATION [None]
  - DYSPHAGIA [None]
  - FOOD INTOLERANCE [None]
